FAERS Safety Report 5480725-X (Version None)
Quarter: 2007Q4

REPORT INFORMATION
  Report Type: 
  Country: None (occurrence: None)
  Receive Date: 20071003
  Receipt Date: 20070925
  Transmission Date: 20080405
  Serious: Yes (Life-Threatening, Hospitalization)
  Sender: FDA-Public Use
  Company Number: S07-USA-02000-02

PATIENT
  Age: 2 Day
  Sex: Female

DRUGS (5)
  1. LEXAPRO [Suspect]
     Dosage: 20 MG QD TRANSPLACENTAL
     Route: 064
     Dates: start: 20061101, end: 20060101
  2. LEXAPRO [Suspect]
     Dosage: 10 MG QD TRANSPLACENTAL
     Route: 064
     Dates: start: 20060101, end: 20070101
  3. LEXAPRO [Suspect]
     Dosage: 10 MG QD BF
     Dates: start: 20070101, end: 20070510
  4. CYMBALTA [Concomitant]
  5. ZOLOFT [Concomitant]

REACTIONS (14)
  - APNOEA [None]
  - BRADYCARDIA [None]
  - CONVULSION [None]
  - CYANOSIS NEONATAL [None]
  - DEHYDRATION [None]
  - DEVELOPMENTAL DELAY [None]
  - DRUG EXPOSURE DURING PREGNANCY [None]
  - DRUG EXPOSURE VIA BREAST MILK [None]
  - DYSPHAGIA [None]
  - ISCHAEMIC STROKE [None]
  - NEONATAL DISORDER [None]
  - NEONATAL HYPOTENSION [None]
  - PYREXIA [None]
  - UMBILICAL CORD AROUND NECK [None]
